FAERS Safety Report 8123474-1 (Version None)
Quarter: 2012Q1

REPORT INFORMATION
  Report Type: 
  Country: None (occurrence: None)
  Receive Date: 20120208
  Receipt Date: 20120130
  Transmission Date: 20120608
  Serious: Yes (Hospitalization, Other)
  Sender: FDA-Public Use
  Company Number: PHEH2011US012725

PATIENT
  Sex: Female

DRUGS (26)
  1. XANAX [Concomitant]
     Dosage: 0.25 MG, PRN
  2. DOCUSATE SODIUM [Concomitant]
  3. GILENYA [Suspect]
     Indication: MULTIPLE SCLEROSIS
     Dosage: 0.5 MG, QD
     Route: 048
     Dates: start: 20111206, end: 20111215
  4. COLACE [Concomitant]
  5. PREMARIN [Concomitant]
  6. VITAMIN D [Concomitant]
  7. TIZANIDINE HCL [Concomitant]
     Dosage: 4 MG, QD
  8. PRILOSEC [Concomitant]
  9. ACETAMINOPHEN [Concomitant]
  10. CALCIUM [Concomitant]
  11. MOTRIN [Concomitant]
  12. TRAZODONE HCL [Concomitant]
     Dosage: 100 MG, QD
  13. VICODIN [Concomitant]
     Dosage: UNK
  14. ONDANSETRON HCL [Concomitant]
  15. LEVOFLOXACIN [Concomitant]
     Dosage: UNK
  16. PAXIL [Concomitant]
     Dosage: 20 MG, QD
  17. AMPYRA [Concomitant]
     Dosage: 10 MG, Q12H
  18. CALCIUM WITH VITAMIN D [Concomitant]
     Dosage: 600 MG, BID
  19. LISINOPRIL [Concomitant]
     Dosage: 10 MG, QD
  20. ESTRADIOL [Concomitant]
     Dosage: 1 MG, QD
  21. TRAZODONE HCL [Concomitant]
  22. OMEPRAZOLE [Concomitant]
     Dosage: 40 MG, QD
  23. MIRALAX [Concomitant]
  24. HYDROCODONE [Concomitant]
  25. PROTONIX [Concomitant]
  26. XOPENEX [Concomitant]

REACTIONS (28)
  - CONFUSIONAL STATE [None]
  - HEADACHE [None]
  - DEPRESSION [None]
  - VISION BLURRED [None]
  - LOW DENSITY LIPOPROTEIN DECREASED [None]
  - POSTERIOR REVERSIBLE ENCEPHALOPATHY SYNDROME [None]
  - WHITE BLOOD CELL COUNT INCREASED [None]
  - MEMORY IMPAIRMENT [None]
  - DYSPHAGIA [None]
  - CONSTIPATION [None]
  - VOMITING [None]
  - SOMNOLENCE [None]
  - MULTIPLE SCLEROSIS RELAPSE [None]
  - DISTURBANCE IN ATTENTION [None]
  - HYPERTENSION [None]
  - COUGH [None]
  - CONVULSION [None]
  - BRAIN OEDEMA [None]
  - ASTHENIA [None]
  - HYPOAESTHESIA [None]
  - PARAESTHESIA [None]
  - NAUSEA [None]
  - DYSPNOEA [None]
  - DYSARTHRIA [None]
  - COGNITIVE DISORDER [None]
  - BLOOD PRESSURE INCREASED [None]
  - ANAEMIA [None]
  - RED BLOOD CELL COUNT DECREASED [None]
